FAERS Safety Report 18249012 (Version 11)
Quarter: 2021Q3

REPORT INFORMATION
  Report Type: Report from Study
  Country: IT (occurrence: IT)
  Receive Date: 20200909
  Receipt Date: 20210902
  Transmission Date: 20211014
  Serious: Yes (Hospitalization)
  Sender: FDA-Public Use
  Company Number: IT-CELGENEUS-ITA-20200706660

PATIENT
  Age: 60 Year
  Sex: Male
  Weight: 73 kg

DRUGS (19)
  1. BETADINE [Concomitant]
     Active Substance: POVIDONE-IODINE
     Indication: SWELLING
     Dosage: 1 APPLICATION
     Route: 061
     Dates: start: 201912
  2. MESAVANCOL [Concomitant]
     Active Substance: MESALAMINE
     Indication: COLITIS ULCERATIVE
     Dosage: 4800 MILLIGRAM
     Route: 048
     Dates: start: 201707
  3. PARACETAMOL [Concomitant]
     Active Substance: ACETAMINOPHEN
     Indication: ANAL FISTULA
     Route: 041
     Dates: start: 20200710, end: 20200710
  4. OZANIMOD. [Suspect]
     Active Substance: OZANIMOD
     Dosage: 1 MILLIGRAM
     Route: 048
     Dates: start: 20200719, end: 20200826
  5. OZANIMOD. [Suspect]
     Active Substance: OZANIMOD
     Dosage: 1 MILLIGRAM
     Route: 048
     Dates: start: 20200909, end: 20201202
  6. UROREC [Concomitant]
     Active Substance: SILODOSIN
     Indication: BENIGN PROSTATIC HYPERPLASIA
     Dosage: 8 MILLIGRAM
     Route: 048
     Dates: start: 201801
  7. PARACETAMOL [Concomitant]
     Active Substance: ACETAMINOPHEN
     Dosage: 3 GRAM
     Route: 041
     Dates: start: 20200901, end: 20200902
  8. ECOVAL [Concomitant]
     Indication: SWELLING
     Dosage: 1 APPLICATION
     Route: 061
     Dates: start: 201912
  9. IBUPROFEN. [Concomitant]
     Active Substance: IBUPROFEN
     Indication: HEADACHE
     Route: 048
     Dates: start: 20200118, end: 20200119
  10. PARACETAMOL [Concomitant]
     Active Substance: ACETAMINOPHEN
     Indication: PROPHYLAXIS
     Route: 041
     Dates: start: 20190902, end: 20190902
  11. ACITRETIN. [Concomitant]
     Active Substance: ACITRETIN
     Indication: PSORIASIS
     Dosage: 10 MILLIGRAM
     Route: 048
     Dates: start: 20181122
  12. CORTIMENT [Concomitant]
     Indication: COLITIS ULCERATIVE
     Dosage: 4.5 MILLIGRAM
     Route: 048
     Dates: start: 20200301, end: 20200415
  13. OZANIMOD. [Suspect]
     Active Substance: OZANIMOD
     Indication: COLITIS ULCERATIVE
     Dosage: 1 MILLIGRAM
     Route: 048
     Dates: start: 20190704, end: 20200110
  14. ECERAMOL 311 [Concomitant]
     Indication: PSORIASIS
     Route: 061
     Dates: start: 20191224
  15. PARACETAMOL [Concomitant]
     Active Substance: ACETAMINOPHEN
     Indication: PROCEDURAL PAIN
     Dosage: 1 GRAM
     Route: 048
     Dates: start: 20200302, end: 20200803
  16. PARACETAMOL [Concomitant]
     Active Substance: ACETAMINOPHEN
     Dosage: 1 GRAM
     Route: 041
     Dates: start: 20200903, end: 20200904
  17. PARACETAMOL [Concomitant]
     Active Substance: ACETAMINOPHEN
     Route: 041
     Dates: start: 20200831, end: 20200831
  18. OZANIMOD. [Suspect]
     Active Substance: OZANIMOD
     Dosage: 1 MILLIGRAM
     Route: 048
     Dates: start: 20200120, end: 20200707
  19. U?LIFE 40 [Concomitant]
     Indication: PSORIASIS
     Route: 061
     Dates: start: 20191224

REACTIONS (3)
  - Anal abscess [Recovered/Resolved]
  - Anal abscess [Recovered/Resolved]
  - Anal abscess [Recovered/Resolved]

NARRATIVE: CASE EVENT DATE: 20200425
